FAERS Safety Report 25512940 (Version 1)
Quarter: 2025Q3

REPORT INFORMATION
  Report Type: Spontaneous
  Country: US (occurrence: US)
  Receive Date: 20250703
  Receipt Date: 20250703
  Transmission Date: 20251020
  Serious: No
  Sender: Haleon PLC
  Company Number: US-HALEON-2250555

PATIENT
  Age: 67 Year
  Sex: Female

DRUGS (2)
  1. TUMS EXTRA STRENGTH, SMOOTHIES [Suspect]
     Active Substance: CALCIUM CARBONATE
     Indication: Dyspepsia
     Dates: start: 20250629, end: 20250702
  2. TUMS EXTRA STRENGTH, SMOOTHIES [Suspect]
     Active Substance: CALCIUM CARBONATE
     Indication: Dyspepsia

REACTIONS (4)
  - Lip swelling [Unknown]
  - Paraesthesia oral [Unknown]
  - Incorrect dose administered [Unknown]
  - Off label use [Unknown]
